FAERS Safety Report 8261784 (Version 3)
Quarter: 2012Q4

REPORT INFORMATION
  Report Type: 
  Country: CA (occurrence: CA)
  Receive Date: 20111123
  Receipt Date: 20121022
  Transmission Date: 20130627
  Serious: Yes (Hospitalization, Other)
  Sender: FDA-Public Use
  Company Number: CA-JNJFOC-20111107798

PATIENT
  Age: 29 None
  Sex: Female
  Weight: 66 kg

DRUGS (7)
  1. REMICADE [Suspect]
     Indication: CROHN^S DISEASE
     Route: 042
     Dates: start: 20111103
  2. REMICADE [Suspect]
     Indication: CROHN^S DISEASE
     Route: 042
     Dates: start: 20100311, end: 20110421
  3. REMICADE [Suspect]
     Indication: CROHN^S DISEASE
     Dosage: approximately the patient received a total of 5 infusions
     Route: 042
     Dates: start: 20111115, end: 20111115
  4. REMICADE [Suspect]
     Indication: CROHN^S DISEASE
     Route: 042
     Dates: start: 201110
  5. BENADRYL [Concomitant]
     Indication: PREMEDICATION
     Route: 048
     Dates: start: 20111115
  6. TYLENOL [Concomitant]
     Indication: PREMEDICATION
     Route: 048
     Dates: start: 20111115
  7. SOLUCORTEF [Concomitant]
     Indication: PREMEDICATION
     Route: 042
     Dates: start: 20111115

REACTIONS (11)
  - Hypersensitivity [Unknown]
  - Hypokinesia [Unknown]
  - Tinnitus [Recovered/Resolved]
  - Tachycardia [Recovered/Resolved]
  - Arthritis [Unknown]
  - Erythema [Recovered/Resolved]
  - Hyperhidrosis [Recovered/Resolved]
  - Infusion related reaction [Recovered/Resolved]
  - Dyspnoea [Recovered/Resolved]
  - Systemic lupus erythematosus [Unknown]
  - Apnoea [Unknown]
